FAERS Safety Report 8330015-2 (Version None)
Quarter: 2012Q2

REPORT INFORMATION
  Report Type: 
  Country: None (occurrence: None)
  Receive Date: 20120502
  Receipt Date: 20100125
  Transmission Date: 20120825
  Serious: No
  Sender: FDA-Public Use
  Company Number: US-TEVA-2009029814

PATIENT
  Sex: Female

DRUGS (3)
  1. LEXAPRO [Concomitant]
     Indication: AFFECTIVE DISORDER
     Dosage: 20 MILLIGRAM;
     Dates: start: 20060101
  2. NUVIGIL [Suspect]
     Indication: NARCOLEPSY
     Dosage: 250 MILLIGRAM;
     Route: 048
     Dates: start: 20091221, end: 20091221
  3. VALIUM [Concomitant]
     Indication: PANIC ATTACK

REACTIONS (1)
  - PANIC ATTACK [None]
